FAERS Safety Report 4839541-1 (Version None)
Quarter: 2005Q4

REPORT INFORMATION
  Report Type: 
  Country: None (occurrence: None)
  Receive Date: 20051128
  Receipt Date: 20051128
  Transmission Date: 20060501
  Serious: Yes (Other)
  Sender: FDA-Public Use
  Company Number: None

PATIENT
  Sex: Female

DRUGS (2)
  1. PEGASYS [Suspect]
     Dosage: SEE IMAGE
     Dates: end: 20040301
  2. COPEGUS [Suspect]
     Dosage: SEE IMAGE

REACTIONS (3)
  - FIBROMYALGIA [None]
  - RAYNAUD'S PHENOMENON [None]
  - VERTIGO [None]
